FAERS Safety Report 21480442 (Version 1)
Quarter: 2022Q4

REPORT INFORMATION
  Report Type: Spontaneous
  Country: CN (occurrence: CN)
  Receive Date: 20221019
  Receipt Date: 20221019
  Transmission Date: 20230113
  Serious: Yes (Hospitalization)
  Sender: FDA-Public Use
  Company Number: CN-ORGANON-O2210CHN000710

PATIENT
  Age: 33 Year
  Sex: Female
  Weight: 85.3 kg

DRUGS (8)
  1. FOLLITROPIN BETA [Suspect]
     Active Substance: FOLLITROPIN BETA
     Indication: Ovulation induction
     Dosage: 300IU, QD
     Route: 058
     Dates: start: 20220827, end: 20220903
  2. FOLLITROPIN BETA [Suspect]
     Active Substance: FOLLITROPIN BETA
  3. LETROZOLE [Suspect]
     Active Substance: LETROZOLE
     Indication: Ovulation induction
     Dosage: 2 TABLETS, QD
     Route: 048
     Dates: start: 20220827, end: 20220831
  4. MENOTROPINS [Suspect]
     Active Substance: MENOTROPINS
     Indication: Ovulation induction
     Dosage: 300IU, QD
     Route: 030
     Dates: start: 20220905, end: 20220906
  5. MENOTROPINS [Suspect]
     Active Substance: MENOTROPINS
     Dosage: 375IU, QD
     Route: 030
     Dates: start: 20220907, end: 20220907
  6. CHORIONIC GONADOTROPHIN [Suspect]
     Active Substance: CHORIOGONADOTROPIN ALFA
     Indication: Ovulation induction
     Dosage: 2000IU, QD
     Route: 030
     Dates: start: 20220907, end: 20220907
  7. TRIPTORELIN ACETATE [Suspect]
     Active Substance: TRIPTORELIN ACETATE
     Indication: Ovulation induction
     Dosage: 0.2MG, QD
     Route: 058
     Dates: start: 20220907, end: 20220907
  8. SODIUM CHLORIDE [Concomitant]
     Active Substance: SODIUM CHLORIDE
     Indication: Medication dilution
     Dosage: 1ML, QD
     Route: 030
     Dates: start: 20220905, end: 20220907

REACTIONS (6)
  - Chest discomfort [Recovering/Resolving]
  - Asthenia [Recovering/Resolving]
  - Ovarian hyperstimulation syndrome [Recovering/Resolving]
  - Abdominal distension [Recovering/Resolving]
  - Abdominal pain [Recovering/Resolving]
  - Abdominal discomfort [Recovering/Resolving]

NARRATIVE: CASE EVENT DATE: 20220909
